FAERS Safety Report 5760409-0 (Version None)
Quarter: 2008Q2

REPORT INFORMATION
  Report Type: 
  Country: None (occurrence: None)
  Receive Date: 20080605
  Receipt Date: 20080529
  Transmission Date: 20081010
  Serious: Yes (Hospitalization)
  Sender: FDA-Public Use
  Company Number: FR-ABBOTT-08P-056-0453970-00

PATIENT
  Sex: Female

DRUGS (9)
  1. ZECLAR [Suspect]
     Indication: HELICOBACTER INFECTION
     Route: 048
     Dates: start: 20080414, end: 20080417
  2. AMOXICILLIN [Suspect]
     Indication: HELICOBACTER INFECTION
     Dosage: 2 GM, DAILY
     Route: 048
     Dates: start: 20080414, end: 20080417
  3. NIMESULIDE [Suspect]
     Indication: ARTHRALGIA
     Route: 048
     Dates: start: 20080407, end: 20080414
  4. ACETYLSALICYLATE LYSINE [Concomitant]
     Indication: DRUG USE FOR UNKNOWN INDICATION
     Dosage: 75 MG, DAILY
     Route: 048
  5. METFORMIN HCL [Concomitant]
     Indication: DRUG USE FOR UNKNOWN INDICATION
     Route: 048
  6. INSULIN GLARGINE [Concomitant]
     Indication: DRUG USE FOR UNKNOWN INDICATION
     Dosage: 28 UI
  7. DI-GESIC [Concomitant]
     Indication: ARTHRALGIA
  8. OMEPRAZOLE [Concomitant]
     Indication: DRUG USE FOR UNKNOWN INDICATION
     Dosage: 80 MG, DAILY
     Route: 048
  9. NSAID'S [Concomitant]
     Indication: DRUG USE FOR UNKNOWN INDICATION

REACTIONS (4)
  - CYTOLYTIC HEPATITIS [None]
  - LIVER DISORDER [None]
  - TROPONIN INCREASED [None]
  - UPPER GASTROINTESTINAL HAEMORRHAGE [None]
